FAERS Safety Report 5551076-X (Version None)
Quarter: 2007Q4

REPORT INFORMATION
  Report Type: 
  Country: None (occurrence: None)
  Receive Date: 20071212
  Receipt Date: 20071206
  Transmission Date: 20080405
  Serious: Yes (Hospitalization)
  Sender: FDA-Public Use
  Company Number: JP-BRISTOL-MYERS SQUIBB COMPANY-13564174

PATIENT
  Age: 53 Year
  Sex: Female

DRUGS (4)
  1. BARACLUDE [Suspect]
     Indication: HEPATIC CIRRHOSIS
     Dosage: STOPPED ON 29-OCT-2006. RESTARTED ON 13-NOV-2006.
     Route: 048
     Dates: start: 20061018, end: 20060101
  2. CLINORIL [Concomitant]
     Route: 048
     Dates: start: 20061019
  3. ZANTAC [Concomitant]
     Route: 048
     Dates: start: 20061019
  4. SHAKUYAKU-KANZOH-TOH [Concomitant]
     Route: 048

REACTIONS (1)
  - GENERALISED OEDEMA [None]
